FAERS Safety Report 10276866 (Version 3)
Quarter: 2014Q4

REPORT INFORMATION
  Report Type: Spontaneous
  Country: FR (occurrence: FR)
  Receive Date: 20140703
  Receipt Date: 20141112
  Transmission Date: 20150528
  Serious: Yes (Hospitalization, Other)
  Sender: FDA-Public Use
  Company Number: FR-TEVA-491610ISR

PATIENT
  Age: 51 Year
  Sex: Female
  Weight: 55.8 kg

DRUGS (2)
  1. LAROXYL 25MG [Concomitant]
     Indication: NEURALGIA
     Dosage: 25 MILLIGRAM DAILY;
     Route: 048
     Dates: start: 2004
  2. COPAXONE [Suspect]
     Active Substance: GLATIRAMER ACETATE
     Indication: MULTIPLE SCLEROSIS
     Dosage: 20 MILLIGRAM DAILY; DURING AT LEAST 7 YEARS
     Dates: start: 2006, end: 20140524

REACTIONS (1)
  - Immune thrombocytopenic purpura [Recovering/Resolving]

NARRATIVE: CASE EVENT DATE: 20140523
